FAERS Safety Report 10524575 (Version 1)
Quarter: 2014Q4

REPORT INFORMATION
  Report Type: Spontaneous
  Country: US (occurrence: None)
  Receive Date: 20141015
  Receipt Date: 20141015
  Transmission Date: 20150528
  Serious: Yes (Hospitalization)
  Sender: FDA-Public Use
  Company Number: None

PATIENT
  Age: 59 Year
  Sex: Female

DRUGS (19)
  1. LORAZEPAM. [Concomitant]
     Active Substance: LORAZEPAM
  2. OMEPRAZOLE. [Concomitant]
     Active Substance: OMEPRAZOLE
  3. LACTULOSE. [Concomitant]
     Active Substance: LACTULOSE
  4. DOCUSATE [Concomitant]
     Active Substance: DOCUSATE
  5. MIDAZOLAM [Concomitant]
     Active Substance: MIDAZOLAM\MIDAZOLAM HYDROCHLORIDE
  6. ACETAMINOPHEN. [Concomitant]
     Active Substance: ACETAMINOPHEN
  7. HYDRALAZINE [Concomitant]
     Active Substance: HYDRALAZINE HYDROCHLORIDE
  8. ACYCLOVIR. [Concomitant]
     Active Substance: ACYCLOVIR
  9. D5-NACL 0.9% [Concomitant]
  10. HYDROMORPHONE [Concomitant]
     Active Substance: HYDROMORPHONE
  11. POMALYST [Suspect]
     Active Substance: POMALIDOMIDE
     Indication: PLASMA CELL MYELOMA
     Dosage: 2 MG DAILY X21D/28D
     Route: 048
     Dates: start: 20140729, end: 201409
  12. FENTANYL. [Concomitant]
     Active Substance: FENTANYL
  13. MORPHINE [Concomitant]
     Active Substance: MORPHINE
  14. BISACODYL. [Concomitant]
     Active Substance: BISACODYL
  15. SENNOSIDES. [Concomitant]
     Active Substance: SENNOSIDES
  16. CEFTRIAXONE. [Concomitant]
     Active Substance: CEFTRIAXONE
  17. TEMAZEPAM. [Concomitant]
     Active Substance: TEMAZEPAM
  18. POMALYST [Suspect]
     Active Substance: POMALIDOMIDE
     Indication: PLASMA CELL MYELOMA
     Route: 048
     Dates: start: 20140612, end: 20140728
  19. ONDANSETRON [Concomitant]
     Active Substance: ONDANSETRON

REACTIONS (8)
  - Brain mass [None]
  - Acute kidney injury [None]
  - Condition aggravated [None]
  - Nausea [None]
  - Deep vein thrombosis [None]
  - Confusional state [None]
  - Mental status changes [None]
  - Vomiting [None]

NARRATIVE: CASE EVENT DATE: 20141003
